FAERS Safety Report 14592672 (Version 1)
Quarter: 2018Q1

REPORT INFORMATION
  Report Type: Spontaneous
  Country: FR (occurrence: FR)
  Receive Date: 20180302
  Receipt Date: 20180302
  Transmission Date: 20180509
  Serious: Yes (Other)
  Sender: FDA-Public Use
  Company Number: FR-VIIV HEALTHCARE LIMITED-FR2018GSK030220

PATIENT
  Sex: Female

DRUGS (4)
  1. TRIUMEQ [Suspect]
     Active Substance: ABACAVIR SULFATE\DOLUTEGRAVIR SODIUM\LAMIVUDINE
     Indication: HIV INFECTION
     Dosage: UNK, DF
     Route: 048
     Dates: start: 20161114, end: 20171120
  2. REYATAZ [Concomitant]
     Active Substance: ATAZANAVIR SULFATE
     Indication: HIV INFECTION
     Dosage: UNK
     Dates: end: 201608
  3. TRUVADA [Concomitant]
     Active Substance: EMTRICITABINE\TENOFOVIR DISOPROXIL FUMARATE
     Indication: HIV INFECTION
     Dosage: UNK
     Dates: end: 201608
  4. NORVIR [Concomitant]
     Active Substance: RITONAVIR
     Indication: HIV INFECTION
     Dosage: UNK
     Dates: end: 201608

REACTIONS (6)
  - Tendonitis [Recovered/Resolved]
  - Myalgia [Recovered/Resolved]
  - Myositis [Recovered/Resolved]
  - Gait disturbance [Recovered/Resolved]
  - Tendon pain [Recovered/Resolved]
  - Mitochondrial toxicity [Recovered/Resolved]

NARRATIVE: CASE EVENT DATE: 2016
